FAERS Safety Report 19447773 (Version 1)
Quarter: 2021Q2

REPORT INFORMATION
  Report Type: Other
  Country: US (occurrence: US)
  Receive Date: 20210622
  Receipt Date: 20210622
  Transmission Date: 20210717
  Serious: Yes (Hospitalization, Other)
  Sender: FDA-Public Use
  Company Number: US-VGYAAN PHARMACEUTICALS LLC-2112976

PATIENT
  Age: 19 Year
  Sex: Female

DRUGS (1)
  1. NADOLOL. [Suspect]
     Active Substance: NADOLOL
     Indication: VENTRICULAR TACHYCARDIA
     Route: 065

REACTIONS (4)
  - Oligohydramnios [Unknown]
  - Foetal growth restriction [Unknown]
  - Premature labour [Unknown]
  - Maternal exposure during pregnancy [Unknown]
